FAERS Safety Report 17795247 (Version 7)
Quarter: 2021Q1

REPORT INFORMATION
  Report Type: Report from Study
  Country: US (occurrence: US)
  Receive Date: 20200516
  Receipt Date: 20210119
  Transmission Date: 20210419
  Serious: Yes (Other)
  Sender: FDA-Public Use
  Company Number: NVSC2020US133309

PATIENT
  Age: 42 Year
  Sex: Female

DRUGS (5)
  1. GILENYA [Suspect]
     Active Substance: FINGOLIMOD HYDROCHLORIDE
     Dosage: 0.5 MG, QD
     Route: 048
  2. GILENYA [Suspect]
     Active Substance: FINGOLIMOD HYDROCHLORIDE
     Dosage: 0.5 MG, QD
     Route: 048
     Dates: start: 20200513, end: 20200518
  3. GILENYA [Suspect]
     Active Substance: FINGOLIMOD HYDROCHLORIDE
     Dosage: 0.5 MG, QD
     Route: 048
  4. GILENYA [Suspect]
     Active Substance: FINGOLIMOD HYDROCHLORIDE
     Indication: MULTIPLE SCLEROSIS
     Dosage: 0.5 MG, QD
     Route: 048
     Dates: start: 20200513, end: 20200513
  5. GILENYA [Suspect]
     Active Substance: FINGOLIMOD HYDROCHLORIDE
     Dosage: 0.5 MG, QD
     Route: 048

REACTIONS (21)
  - Eye pain [Not Recovered/Not Resolved]
  - Eye pain [Unknown]
  - Headache [Recovered/Resolved]
  - Arthralgia [Recovered/Resolved]
  - Muscle tightness [Unknown]
  - Dizziness [Unknown]
  - Nausea [Unknown]
  - Neck pain [Not Recovered/Not Resolved]
  - Pain [Unknown]
  - Back pain [Recovered/Resolved]
  - Depressed level of consciousness [Unknown]
  - Paranasal sinus discomfort [Not Recovered/Not Resolved]
  - Cough [Unknown]
  - Headache [Unknown]
  - Bone pain [Unknown]
  - Muscle spasms [Unknown]
  - Fatigue [Recovered/Resolved]
  - Visual impairment [Not Recovered/Not Resolved]
  - Insomnia [Unknown]
  - Asthenia [Recovered/Resolved]
  - Fatigue [Not Recovered/Not Resolved]

NARRATIVE: CASE EVENT DATE: 20200513
